FAERS Safety Report 4365323-3 (Version None)
Quarter: 2004Q2

REPORT INFORMATION
  Report Type: 
  Country: None (occurrence: None)
  Receive Date: 20040521
  Receipt Date: 20040503
  Transmission Date: 20050107
  Serious: Yes (Hospitalization, Other)
  Sender: FDA-Public Use
  Company Number: US_010157517

PATIENT
  Age: 62 Year
  Sex: Male
  Weight: 91 kg

DRUGS (4)
  1. HUMULIN 70/30 [Suspect]
     Indication: DIABETES MELLITUS
     Dates: end: 19980101
  2. HUMALOG [Suspect]
     Indication: DIABETES MELLITUS
     Dosage: 6 U/AS NEEDED
     Dates: start: 19980101
  3. HUMULIN N [Suspect]
     Indication: DIABETES MELLITUS
     Dosage: 35 U/AS NEEDED
     Dates: start: 19980101
  4. HUMULIN R [Suspect]
     Indication: DIABETES MELLITUS INSULIN-DEPENDENT

REACTIONS (8)
  - BLOOD GLUCOSE FLUCTUATION [None]
  - CELLULITIS [None]
  - EYE DISORDER [None]
  - HYPERKERATOSIS [None]
  - MELANODERMIA [None]
  - PHARMACEUTICAL PRODUCT COMPLAINT [None]
  - VISUAL DISTURBANCE [None]
  - WOUND [None]
